FAERS Safety Report 14408687 (Version 2)
Quarter: 2018Q1

REPORT INFORMATION
  Report Type: Report from Study
  Country: None (occurrence: FR)
  Receive Date: 20180119
  Receipt Date: 20180303
  Transmission Date: 20180509
  Serious: Yes (Hospitalization, Other)
  Sender: FDA-Public Use
  Company Number: FR-ABBVIE-18S-056-2221768-00

PATIENT
  Age: 51 Year
  Sex: Male

DRUGS (6)
  1. DOLUTEGRAVIR [Suspect]
     Active Substance: DOLUTEGRAVIR
     Indication: HIV INFECTION
     Dosage: 50 MG, BID
     Route: 048
     Dates: start: 20140519
  2. PREZISTA [Suspect]
     Active Substance: DARUNAVIR ETHANOLATE
     Indication: HIV INFECTION
     Dosage: UNK
     Route: 065
     Dates: start: 20140519
  3. EDURANT [Suspect]
     Active Substance: RILPIVIRINE HYDROCHLORIDE
     Indication: PRODUCT USED FOR UNKNOWN INDICATION
     Route: 065
  4. TIVICAY [Suspect]
     Active Substance: DOLUTEGRAVIR SODIUM
     Indication: HIV INFECTION
     Dosage: 50 MG, BID
     Route: 065
     Dates: start: 20140519
  5. NORVIR [Suspect]
     Active Substance: RITONAVIR
     Indication: HIV INFECTION
     Dosage: UNK
     Route: 048
     Dates: start: 20140519
  6. EPIVIR [Suspect]
     Active Substance: LAMIVUDINE
     Indication: HIV INFECTION
     Dosage: UNK
     Route: 065

REACTIONS (16)
  - Muscle spasms [Unknown]
  - Thrombocytopenia [Unknown]
  - Asthenia [Unknown]
  - Anogenital warts [Unknown]
  - Anogenital dysplasia [Recovered/Resolved]
  - Virologic failure [Unknown]
  - Vomiting [Unknown]
  - Anal cancer stage 0 [Recovered/Resolved]
  - Papilloma excision [Unknown]
  - Nausea [Unknown]
  - Diarrhoea [Unknown]
  - Anogenital warts [Unknown]
  - Asthma [Unknown]
  - Lung disorder [Unknown]
  - Depressed mood [Unknown]
  - Herpes simplex [Unknown]

NARRATIVE: CASE EVENT DATE: 20150101
